FAERS Safety Report 11258182 (Version 1)
Quarter: 2015Q3

REPORT INFORMATION
  Report Type: Spontaneous
  Country: JP (occurrence: JP)
  Receive Date: 20150710
  Receipt Date: 20150710
  Transmission Date: 20151125
  Serious: Yes (Other)
  Sender: FDA-Public Use
  Company Number: JP-MERCK-1507JPN003738

PATIENT
  Sex: Female

DRUGS (1)
  1. REFLEX [Suspect]
     Active Substance: MIRTAZAPINE
     Indication: DEPRESSION
     Dosage: 15 MG DAILY
     Route: 048

REACTIONS (2)
  - Fall [Recovered/Resolved]
  - Somnolence [Recovered/Resolved]
